FAERS Safety Report 5688989-4 (Version None)
Quarter: 2008Q1

REPORT INFORMATION
  Report Type: 
  Country: None (occurrence: None)
  Receive Date: 20080331
  Receipt Date: 20080321
  Transmission Date: 20080703
  Serious: Yes (Hospitalization)
  Sender: FDA-Public Use
  Company Number: A0714079A

PATIENT
  Age: 83 Year
  Sex: Female

DRUGS (4)
  1. ADVAIR HFA [Suspect]
     Indication: CHRONIC OBSTRUCTIVE PULMONARY DISEASE
     Dosage: 1PUFF TWICE PER DAY
     Route: 055
     Dates: start: 20070501
  2. IMDUR [Concomitant]
  3. EYE DROP [Concomitant]
  4. TYLENOL EX [Concomitant]
     Indication: HEADACHE

REACTIONS (1)
  - DYSPNOEA [None]
